FAERS Safety Report 9716566 (Version 1)
Quarter: 2013Q4

REPORT INFORMATION
  Report Type: Spontaneous
  Country: US (occurrence: US)
  Receive Date: 20131127
  Receipt Date: 20131127
  Transmission Date: 20140711
  Serious: Yes (Other)
  Sender: FDA-Public Use
  Company Number: US-SA-2013SA123130

PATIENT
  Age: 54 Year
  Sex: Female

DRUGS (3)
  1. ARAVA [Suspect]
     Indication: RHEUMATOID ARTHRITIS
     Dosage: 20 MG X 5= 100 MG
     Route: 048
     Dates: start: 201310
  2. ARAVA [Suspect]
     Indication: RHEUMATOID ARTHRITIS
     Route: 048
     Dates: start: 201310
  3. METHOTREXATE [Concomitant]

REACTIONS (8)
  - Mental disorder [Recovered/Resolved]
  - Insomnia [Recovered/Resolved]
  - Bruxism [Recovered/Resolved]
  - Feeling abnormal [Recovered/Resolved]
  - Headache [Recovered/Resolved]
  - Speech disorder [Recovered/Resolved]
  - Muscle spasms [Recovered/Resolved]
  - Rash [Recovered/Resolved]
